FAERS Safety Report 7744737-5 (Version None)
Quarter: 2011Q3

REPORT INFORMATION
  Report Type: 
  Country: None (occurrence: None)
  Receive Date: 20110912
  Receipt Date: 20110907
  Transmission Date: 20111222
  Serious: Yes (Other)
  Sender: FDA-Public Use
  Company Number: US-VALEANT-2011VX002507

PATIENT
  Sex: Female

DRUGS (1)
  1. TIMOPTIC [Suspect]
     Route: 047
     Dates: start: 20100711, end: 20100711

REACTIONS (9)
  - EYE SWELLING [None]
  - HYPERSENSITIVITY [None]
  - PRURITUS [None]
  - VISUAL IMPAIRMENT [None]
  - BLINDNESS TRANSIENT [None]
  - EYE IRRITATION [None]
  - ERYTHEMA [None]
  - EYELID EXFOLIATION [None]
  - PAIN [None]
